FAERS Safety Report 25042469 (Version 1)
Quarter: 2025Q1

REPORT INFORMATION
  Report Type: Spontaneous
  Country: IN (occurrence: IN)
  Receive Date: 20250305
  Receipt Date: 20250305
  Transmission Date: 20250409
  Serious: Yes (Other)
  Sender: SANDOZ
  Company Number: IN-002147023-NVSC2024IN153728

PATIENT

DRUGS (1)
  1. PREDNISOLONE [Suspect]
     Active Substance: PREDNISOLONE
     Indication: Uveitis
     Dosage: 40 MG, QD
     Route: 065

REACTIONS (1)
  - Uveitis [Unknown]
